FAERS Safety Report 8580793-2 (Version None)
Quarter: 2012Q3

REPORT INFORMATION
  Report Type: 
  Country: None (occurrence: None)
  Receive Date: 20120809
  Receipt Date: 20120802
  Transmission Date: 20120928
  Serious: No
  Sender: FDA-Public Use
  Company Number: US-BIOGENIDEC-2012BI029305

PATIENT
  Age: 53 Year
  Sex: Female

DRUGS (1)
  1. AVONEX [Suspect]
     Indication: MULTIPLE SCLEROSIS
     Route: 030
     Dates: start: 20070722

REACTIONS (8)
  - ILL-DEFINED DISORDER [None]
  - DRY MOUTH [None]
  - DRY EYE [None]
  - BACK PAIN [None]
  - FIBROMYALGIA [None]
  - ARTHRALGIA [None]
  - SPINAL FRACTURE [None]
  - BONE LESION [None]
